FAERS Safety Report 5025950-7 (Version None)
Quarter: 2006Q2

REPORT INFORMATION
  Report Type: 
  Country: None (occurrence: None)
  Receive Date: 20060608
  Receipt Date: 20060602
  Transmission Date: 20061013
  Serious: Yes (Life-Threatening, Hospitalization)
  Sender: FDA-Public Use
  Company Number: TCI2005A04126

PATIENT
  Age: 68 Year
  Sex: Male

DRUGS (8)
  1. ACTOS [Suspect]
     Indication: DIABETES MELLITUS NON-INSULIN-DEPENDENT
     Dosage: 30 MG (30 MG, 1 IN 1 D) PER ORAL
     Route: 048
     Dates: start: 20000426
  2. NATEGLINIDE [Suspect]
     Indication: DIABETES MELLITUS NON-INSULIN-DEPENDENT
     Dosage: 60 MG, 90 MG, 120 MG, OR PLACEBO PER ORAL
     Route: 048
     Dates: start: 20050611, end: 20051028
  3. AMLODIPINE BESYLATE [Concomitant]
  4. LOSARTAN POTASSIUM [Concomitant]
  5. OMEPRAZOLE [Concomitant]
  6. SELBEX (TEPRENONE) [Concomitant]
  7. LAMISIL [Concomitant]
  8. TATHION (GLUTATHIONE) [Concomitant]

REACTIONS (5)
  - BLOOD GLUCOSE INCREASED [None]
  - INSOMNIA [None]
  - PROSTATE CANCER [None]
  - RHINORRHOEA [None]
  - SNEEZING [None]
